FAERS Safety Report 7324814-3 (Version None)
Quarter: 2011Q1

REPORT INFORMATION
  Report Type: 
  Country: None (occurrence: None)
  Receive Date: 20110301
  Receipt Date: 20110222
  Transmission Date: 20110831
  Serious: Yes (Other)
  Sender: FDA-Public Use
  Company Number: US-US-EMD SERONO, INC.-7001534

PATIENT
  Sex: Female

DRUGS (3)
  1. NUVIGIL [Suspect]
     Dates: start: 20100414, end: 20100415
  2. REBIF [Suspect]
     Indication: PRODUCT USED FOR UNKNOWN INDICATION
     Route: 058
     Dates: start: 20090714
  3. CYMBALTA [Concomitant]
     Indication: DEPRESSION

REACTIONS (2)
  - DEPRESSED MOOD [None]
  - SELF-INJURIOUS IDEATION [None]
